FAERS Safety Report 17602896 (Version 1)
Quarter: 2020Q1

REPORT INFORMATION
  Report Type: Spontaneous
  Country: US (occurrence: US)
  Receive Date: 20200331
  Receipt Date: 20200331
  Transmission Date: 20200409
  Serious: No
  Sender: FDA-Public Use
  Company Number: US-SHIRE-US202011679

PATIENT
  Sex: Male
  Weight: 10.88 kg

DRUGS (1)
  1. GAMMAGARD LIQUID [Suspect]
     Active Substance: HUMAN IMMUNOGLOBULIN G
     Indication: DIGEORGE^S SYNDROME
     Dosage: 5 GRAM, EVERY 4 WK
     Route: 042
     Dates: start: 20190806

REACTIONS (2)
  - Intentional product use issue [Unknown]
  - Drug hypersensitivity [Unknown]
